FAERS Safety Report 6240615-1 (Version None)
Quarter: 2009Q2

REPORT INFORMATION
  Report Type: 
  Country: None (occurrence: None)
  Receive Date: 20090623
  Receipt Date: 20081106
  Transmission Date: 20091009
  Serious: No
  Sender: FDA-Public Use
  Company Number: US-ASTRAZENECA-2008UW24894

PATIENT
  Age: 64 Year
  Sex: Female
  Weight: 83.9 kg

DRUGS (21)
  1. PULMICORT RESPULES [Suspect]
     Indication: ASTHMA
     Dosage: 0.5 MG/2 ML, TWICE DAILY
     Route: 055
     Dates: start: 20080401
  2. PULMICORT RESPULES [Suspect]
     Indication: CHRONIC OBSTRUCTIVE PULMONARY DISEASE
     Dosage: 0.5 MG/2 ML, TWICE DAILY
     Route: 055
     Dates: start: 20080401
  3. PULMICORT RESPULES [Suspect]
     Indication: BRONCHITIS CHRONIC
     Dosage: 0.5 MG/2 ML, TWICE DAILY
     Route: 055
     Dates: start: 20080401
  4. CLARITIN [Concomitant]
  5. CLOTRIMAZOLE [Concomitant]
  6. EFFEXOR [Concomitant]
  7. BENZAPRIL [Concomitant]
  8. NASONEX [Concomitant]
  9. MUCINEX [Concomitant]
  10. OXYGEN [Concomitant]
  11. ALBUTEROL [Concomitant]
  12. SPIRIVA [Concomitant]
  13. LORAZEPAM [Concomitant]
  14. RANITIDINE [Concomitant]
  15. PREDNISONE TAB [Concomitant]
  16. XOPENEX [Concomitant]
     Dosage: UNKNOWN
  17. XOPENEX [Concomitant]
     Dosage: ONCE DAILY
  18. ASPIRIN [Concomitant]
  19. STOOL SOFTENERS [Concomitant]
  20. FUROSEMIDE [Concomitant]
  21. NAPROXEN [Concomitant]

REACTIONS (1)
  - TREMOR [None]
